FAERS Safety Report 9376344 (Version 1)
Quarter: 2013Q3

REPORT INFORMATION
  Report Type: Spontaneous
  Country: US (occurrence: US)
  Receive Date: 20130701
  Receipt Date: 20130701
  Transmission Date: 20140515
  Serious: Yes (Other)
  Sender: FDA-Public Use
  Company Number: US-BRISTOL-MYERS SQUIBB COMPANY-19033919

PATIENT
  Sex: Female

DRUGS (1)
  1. KENALOG INJ [Suspect]
     Indication: BACK PAIN
     Dosage: LUMBAR EPIDURAL STEROID INJECTION.
     Dates: start: 20110121

REACTIONS (2)
  - Paralysis [Unknown]
  - Off label use [Unknown]
